FAERS Safety Report 14913154 (Version 1)
Quarter: 2018Q2

REPORT INFORMATION
  Report Type: Report from Study
  Country: US (occurrence: US)
  Receive Date: 20180518
  Receipt Date: 20180518
  Transmission Date: 20180711
  Serious: Yes (Other)
  Sender: FDA-Public Use
  Company Number: US-CIPLA (EU) LIMITED-2018US17973

PATIENT

DRUGS (3)
  1. TEMSIROLIMUS [Suspect]
     Active Substance: TEMSIROLIMUS
     Indication: NEUROBLASTOMA RECURRENT
     Dosage: 35 MG/M2, PER DOSE OVER 30 MIN ON DAYS 1 AND 8
     Route: 042
  2. TEMOZOLOMIDE. [Suspect]
     Active Substance: TEMOZOLOMIDE
     Indication: NEUROBLASTOMA RECURRENT
     Dosage: 100 MG/M2, PER DOSE ON DAYS 1-5 OF 21-DAY CYCLES
     Route: 048
  3. IRINOTECAN [Suspect]
     Active Substance: IRINOTECAN
     Indication: NEUROBLASTOMA RECURRENT
     Dosage: 50 MG/M2, PER DOSE GIVEN OVER 90 MIN
     Route: 042

REACTIONS (1)
  - Drug intolerance [Unknown]
